FAERS Safety Report 8459527-8 (Version None)
Quarter: 2012Q2

REPORT INFORMATION
  Report Type: 
  Country: None (occurrence: None)
  Receive Date: 20120622
  Receipt Date: 20120613
  Transmission Date: 20120825
  Serious: Yes (Other)
  Sender: FDA-Public Use
  Company Number: US-JNJFOC-20120609099

PATIENT
  Age: 28 Year
  Sex: Male

DRUGS (2)
  1. ZYPREXA [Concomitant]
     Route: 065
  2. INVEGA SUSTENNA [Suspect]
     Indication: SCHIZOPHRENIA
     Route: 030
     Dates: start: 20120101, end: 20120101

REACTIONS (1)
  - AKATHISIA [None]
